FAERS Safety Report 8395000-3 (Version None)
Quarter: 2012Q2

REPORT INFORMATION
  Report Type: 
  Country: None (occurrence: None)
  Receive Date: 20120530
  Receipt Date: 20120518
  Transmission Date: 20120825
  Serious: Yes (Other)
  Sender: FDA-Public Use
  Company Number: CA-ELI_LILLY_AND_COMPANY-CA201205008035

PATIENT
  Age: 82 Year
  Sex: Male

DRUGS (4)
  1. CYMBALTA [Suspect]
     Indication: ABNORMAL BEHAVIOUR
     Dosage: 30 MG, QD
     Dates: start: 20120409, end: 20120422
  2. CYMBALTA [Suspect]
     Dosage: 30 MG, QD
  3. SEROQUEL [Concomitant]
     Dosage: 12.5 MG, UNK
  4. CYMBALTA [Suspect]
     Dosage: 60 MG, QD
     Dates: start: 20120423

REACTIONS (4)
  - RADICAL PROSTATECTOMY [None]
  - URINARY RETENTION [None]
  - DIZZINESS [None]
  - OFF LABEL USE [None]
